FAERS Safety Report 6969573-9 (Version None)
Quarter: 2010Q3

REPORT INFORMATION
  Report Type: 
  Country: None (occurrence: None)
  Receive Date: 20100907
  Receipt Date: 20100907
  Transmission Date: 20110219
  Serious: Yes (Life-Threatening, Other)
  Sender: FDA-Public Use
  Company Number: None

PATIENT
  Age: 58 Year
  Sex: Female
  Weight: 70.3075 kg

DRUGS (1)
  1. SAVELLA [Suspect]
     Indication: FIBROMYALGIA
     Dosage: 50MG  2X PER DAY PO
     Route: 048
     Dates: start: 20100501, end: 20100905

REACTIONS (6)
  - ANXIETY [None]
  - DEPRESSION [None]
  - HOT FLUSH [None]
  - HYPERHIDROSIS [None]
  - PALPITATIONS [None]
  - PANIC ATTACK [None]
